FAERS Safety Report 8300069-8 (Version None)
Quarter: 2012Q2

REPORT INFORMATION
  Report Type: 
  Country: None (occurrence: None)
  Receive Date: 20120420
  Receipt Date: 20120416
  Transmission Date: 20120825
  Serious: No
  Sender: FDA-Public Use
  Company Number: US-PFIZER INC-2012094516

PATIENT
  Sex: Female

DRUGS (4)
  1. EFFEXOR XR [Suspect]
     Dosage: 150 MG, 1X/DAY
     Route: 048
     Dates: start: 20120101, end: 20120414
  2. BENADRYL [Suspect]
  3. ESTRADIOL [Concomitant]
     Dosage: 2 MG, 1X/DAY
     Dates: start: 20120101
  4. EFFEXOR XR [Suspect]
     Indication: DEPRESSION
     Dosage: 75 MG, 1X/DAY
     Route: 048

REACTIONS (4)
  - ERYTHEMA [None]
  - BURNING SENSATION [None]
  - DRUG INEFFECTIVE [None]
  - RASH [None]
